FAERS Safety Report 11870631 (Version 1)
Quarter: 2015Q4

REPORT INFORMATION
  Report Type: Spontaneous
  Country: US (occurrence: US)
  Receive Date: 20151228
  Receipt Date: 20151228
  Transmission Date: 20160305
  Serious: Yes (Other)
  Sender: FDA-Public Use
  Company Number: US-SANOFI-AVENTIS-2012SA017902

PATIENT
  Age: 78 Year
  Sex: Male

DRUGS (2)
  1. ASPIRIN. [Suspect]
     Active Substance: ASPIRIN
     Indication: PRODUCT USED FOR UNKNOWN INDICATION
     Route: 065
     Dates: start: 200701
  2. PLAVIX [Suspect]
     Active Substance: CLOPIDOGREL BISULFATE
     Indication: PROMOTION OF PERIPHERAL CIRCULATION
     Route: 065
     Dates: start: 20050101, end: 20090222

REACTIONS (3)
  - Cerebral haemorrhage [Unknown]
  - Headache [Unknown]
  - Muscle spasms [Unknown]

NARRATIVE: CASE EVENT DATE: 20090222
